FAERS Safety Report 7883997-7 (Version None)
Quarter: 2011Q4

REPORT INFORMATION
  Report Type: 
  Country: None (occurrence: None)
  Receive Date: 20111102
  Receipt Date: 20111025
  Transmission Date: 20120403
  Serious: Yes (Hospitalization)
  Sender: FDA-Public Use
  Company Number: PHEH2011US07764

PATIENT
  Age: 37 Year
  Sex: Female

DRUGS (1)
  1. FANAPT [Suspect]
     Dosage: UNK
     Route: 048
     Dates: start: 20110801, end: 20111001

REACTIONS (1)
  - PNEUMONIA [None]
